FAERS Safety Report 9266841 (Version 2)
Quarter: 2013Q2

REPORT INFORMATION
  Report Type: Spontaneous
  Country: US (occurrence: US)
  Receive Date: 20130501
  Receipt Date: 20130510
  Transmission Date: 20140414
  Serious: No
  Sender: FDA-Public Use
  Company Number: US-RB-053638-13

PATIENT
  Age: 12 Year
  Sex: Male

DRUGS (3)
  1. MUCINEX FAST MAX CAPLETS COLD + SINUS (ACETAMINOPHEN) [Suspect]
     Indication: PRODUCT USED FOR UNKNOWN INDICATION
     Dosage: 2 CAPLETS EVERY 4 HOURS. STOPPED ON 23/APR/2013
     Route: 048
     Dates: start: 20130423
  2. MUCINEX FAST MAX CAPLETS COLD + SINUS (GUAIFENESIN) [Suspect]
  3. MUCINEX FAST MAX CAPLETS COLD + SINUS (PHENYLEPHRINE HYDROCHLORIDE) [Suspect]

REACTIONS (1)
  - Epistaxis [Recovered/Resolved]
